FAERS Safety Report 7369960-3 (Version None)
Quarter: 2011Q1

REPORT INFORMATION
  Report Type: 
  Country: None (occurrence: None)
  Receive Date: 20110323
  Receipt Date: 20110309
  Transmission Date: 20110831
  Serious: Yes (Hospitalization)
  Sender: FDA-Public Use
  Company Number: PHHY2011FR19875

PATIENT
  Age: 74 Year
  Sex: Female

DRUGS (6)
  1. TRILEPTAL [Suspect]
     Dosage: 1 DF, QD
     Route: 048
     Dates: start: 20100926, end: 20101001
  2. XANAX [Suspect]
     Dates: start: 20100905, end: 20101001
  3. AMLODIPINE BESYLATE [Concomitant]
     Dosage: 5 MG, UNK
     Route: 048
  4. TAHOR [Concomitant]
     Dosage: 10 MG, UNK
  5. VASTAREL [Concomitant]
  6. FLUDEX [Concomitant]

REACTIONS (7)
  - TOXIC SKIN ERUPTION [None]
  - ATROPHIC GLOSSITIS [None]
  - DISORIENTATION [None]
  - DRUG ERUPTION [None]
  - DERMATITIS [None]
  - FALL [None]
  - ALTERED STATE OF CONSCIOUSNESS [None]
